FAERS Safety Report 17520952 (Version 1)
Quarter: 2020Q1

REPORT INFORMATION
  Report Type: Spontaneous
  Country: GB (occurrence: GB)
  Receive Date: 20200310
  Receipt Date: 20200310
  Transmission Date: 20200409
  Serious: Yes (Other)
  Sender: FDA-Public Use
  Company Number: GB-TEVA-2020-GB-1196198

PATIENT
  Age: 24 Year
  Sex: Female
  Weight: 93 kg

DRUGS (5)
  1. PROPRANOLOL [Concomitant]
     Active Substance: PROPRANOLOL HYDROCHLORIDE
     Dosage: 1 DOSAGE FORMS 1 DAYS
     Dates: start: 20200120
  2. DESOGESTREL [Concomitant]
     Active Substance: DESOGESTREL
     Dosage: AT THE SAME TIME EACH DAY , 1 DOSAGE FORMS 1 HOURS
     Dates: start: 20190905
  3. TRIMETHOPRIM. [Concomitant]
     Active Substance: TRIMETHOPRIM
     Dosage: 2 DOSAGE FORMS 1 DAYS
     Dates: start: 20191031, end: 20191103
  4. VENLAFAXINE [Suspect]
     Active Substance: VENLAFAXINE HYDROCHLORIDE
     Dosage: 37.5 MG 1 DAYS
     Dates: start: 20200116
  5. LANSOPRAZOLE. [Concomitant]
     Active Substance: LANSOPRAZOLE
     Dosage: 1 DOSAGE FORMS DAILY; MORNING
     Dates: start: 20191031, end: 20191128

REACTIONS (4)
  - Mouth swelling [Unknown]
  - Lip swelling [Recovered/Resolved]
  - Rash [Recovered/Resolved]
  - Swollen tongue [Recovered/Resolved]

NARRATIVE: CASE EVENT DATE: 20200118
